FAERS Safety Report 4456556-6 (Version None)
Quarter: 2004Q3

REPORT INFORMATION
  Report Type: 
  Country: None (occurrence: None)
  Receive Date: 20040921
  Receipt Date: 20040913
  Transmission Date: 20050211
  Serious: Yes (Death, Hospitalization, Other)
  Sender: FDA-Public Use
  Company Number: US-JNJFOC-20040903689

PATIENT
  Age: 78 Year
  Sex: Female

DRUGS (1)
  1. TYLENOL [Suspect]
     Indication: SUICIDE ATTEMPT
     Dosage: 9100 MG, 1 IN 1 TOTAL, ORAL
     Route: 048

REACTIONS (4)
  - ABDOMINAL PAIN [None]
  - ALANINE AMINOTRANSFERASE INCREASED [None]
  - ASPARTATE AMINOTRANSFERASE INCREASED [None]
  - OVERDOSE [None]
